FAERS Safety Report 5804911-1 (Version None)
Quarter: 2008Q3

REPORT INFORMATION
  Report Type: 
  Country: None (occurrence: None)
  Receive Date: 20080709
  Receipt Date: 20080707
  Transmission Date: 20090109
  Serious: Yes (Death, Hospitalization, Other)
  Sender: FDA-Public Use
  Company Number: PHBS2008ES05012

PATIENT
  Age: 45 Year
  Sex: Male

DRUGS (6)
  1. EVEROLIMUS [Suspect]
     Indication: HEART TRANSPLANT
     Dosage: 6 NG/ML
     Route: 065
     Dates: start: 20060901
  2. CYCLOSPORINE [Suspect]
     Indication: HEART TRANSPLANT
  3. AZATHIOPRINE [Concomitant]
     Indication: IMMUNOSUPPRESSION
     Dosage: UNK
     Route: 065
  4. PREDNISONE TAB [Concomitant]
     Indication: IMMUNOSUPPRESSION
     Dosage: UNK
     Route: 065
  5. CORTICOSTEROIDS [Concomitant]
     Dosage: UNK
     Route: 065
  6. MYCOPHENOLATE MOFETIL [Concomitant]
     Dosage: UNK
     Route: 065

REACTIONS (11)
  - CARDIAC FAILURE [None]
  - COUGH [None]
  - DYSPNOEA [None]
  - INTERSTITIAL LUNG DISEASE [None]
  - LEFT VENTRICULAR DYSFUNCTION [None]
  - NON-CARDIAC CHEST PAIN [None]
  - ORGANISING PNEUMONIA [None]
  - PULMONARY TOXICITY [None]
  - PYREXIA [None]
  - RENAL FAILURE [None]
  - SUDDEN DEATH [None]
